FAERS Safety Report 11675700 (Version 1)
Quarter: 2015Q4

REPORT INFORMATION
  Report Type: Spontaneous
  Country: US (occurrence: US)
  Receive Date: 20151027
  Receipt Date: 20151027
  Transmission Date: 20160304
  Serious: No
  Sender: FDA-Public Use
  Company Number: US-ELI_LILLY_AND_COMPANY-US201009002051

PATIENT
  Sex: Female

DRUGS (2)
  1. FORTEO [Suspect]
     Active Substance: TERIPARATIDE
     Dosage: 20 UG, DAILY (1/D)
  2. CYMBALTA [Concomitant]
     Active Substance: DULOXETINE HYDROCHLORIDE

REACTIONS (7)
  - Limb discomfort [Unknown]
  - Fatigue [Unknown]
  - Hypoacusis [Not Recovered/Not Resolved]
  - Gait disturbance [Unknown]
  - Thirst [Unknown]
  - Memory impairment [Unknown]
  - Back pain [Unknown]
